FAERS Safety Report 10112345 (Version 3)
Quarter: 2014Q2

REPORT INFORMATION
  Report Type: Report from Study
  Country: JP (occurrence: JP)
  Receive Date: 20140425
  Receipt Date: 20140620
  Transmission Date: 20141212
  Serious: Yes (Hospitalization)
  Sender: FDA-Public Use
  Company Number: JP-MERCK-1304JPN015987

PATIENT
  Age: 63 Year
  Sex: Female
  Weight: 47.4 kg

DRUGS (6)
  1. GLACTIV [Suspect]
     Indication: TYPE 2 DIABETES MELLITUS
     Dosage: 50 MG, QAM
     Route: 048
     Dates: start: 20110216, end: 20110414
  2. GLACTIV [Suspect]
     Dosage: 100 MG, QAM
     Route: 048
     Dates: start: 20110415, end: 20130301
  3. TANATRIL [Concomitant]
  4. ARTIST [Concomitant]
     Dosage: UNK
     Dates: end: 20130301
  5. ATELEC [Concomitant]
     Dosage: UNK
     Dates: end: 20130301
  6. LIVALO [Concomitant]
     Dosage: UNK
     Dates: end: 20130301

REACTIONS (1)
  - Gastric cancer [Recovering/Resolving]
